FAERS Safety Report 14305034 (Version 1)
Quarter: 2017Q4

REPORT INFORMATION
  Report Type: Spontaneous
  Country: US (occurrence: US)
  Receive Date: 20171219
  Receipt Date: 20171219
  Transmission Date: 20180321
  Serious: Yes (Other)
  Sender: FDA-Public Use
  Company Number: US-OTSUKA-DJ20060560

PATIENT
  Sex: Female
  Weight: 58.96 kg

DRUGS (9)
  1. ABILIFY [Suspect]
     Active Substance: ARIPIPRAZOLE
     Indication: DISTURBANCE IN ATTENTION
     Dosage: 2.5 MG, UNK
     Route: 048
     Dates: start: 20030526, end: 200306
  2. ABILIFY [Suspect]
     Active Substance: ARIPIPRAZOLE
     Dosage: 5 MG, UNK
     Route: 048
     Dates: start: 20040603, end: 200410
  3. AMOXICILLIN TRIHYDRATE [Interacting]
     Active Substance: AMOXICILLIN
     Indication: PRODUCT USED FOR UNKNOWN INDICATION
     Dosage: UNK
     Route: 065
  4. OMEGA 3 FISH OILS [Concomitant]
     Active Substance: OMEGA-3 FATTY ACIDS
     Indication: PRODUCT USED FOR UNKNOWN INDICATION
     Dosage: UNK
     Route: 065
  5. ABILIFY [Suspect]
     Active Substance: ARIPIPRAZOLE
     Indication: AFFECTIVE DISORDER
     Dosage: 5 MG, UNK
     Route: 048
     Dates: start: 200306
  6. ABILIFY [Suspect]
     Active Substance: ARIPIPRAZOLE
     Dosage: 3.5 MG, UNK
     Route: 048
     Dates: start: 20040525, end: 20040602
  7. ABILIFY [Suspect]
     Active Substance: ARIPIPRAZOLE
     Dosage: 6.25 MG, UNK
     Route: 048
     Dates: start: 200410
  8. AUGMENTIN [Suspect]
     Active Substance: AMOXICILLIN\CLAVULANATE POTASSIUM
     Indication: PRODUCT USED FOR UNKNOWN INDICATION
     Dosage: UNK
     Route: 065
  9. OPC-14597 [Suspect]
     Active Substance: CILOSTAZOL
     Indication: DISTURBANCE IN ATTENTION
     Dosage: 2 ML, UNK
     Route: 048
     Dates: start: 2005

REACTIONS (14)
  - Weight increased [Unknown]
  - Vomiting [Unknown]
  - Dysgeusia [Unknown]
  - Nausea [Recovered/Resolved]
  - Blood triglycerides increased [Unknown]
  - Eye movement disorder [Unknown]
  - Mood swings [Not Recovered/Not Resolved]
  - Drug ineffective [Unknown]
  - Feeling abnormal [Unknown]
  - Fatigue [Not Recovered/Not Resolved]
  - Drug interaction [Unknown]
  - Drug dependence [Unknown]
  - Somnolence [Unknown]
  - Dizziness [Recovered/Resolved]
